FAERS Safety Report 9856687 (Version 1)
Quarter: 2014Q1

REPORT INFORMATION
  Report Type: Spontaneous
  Country: US (occurrence: US)
  Receive Date: 20140130
  Receipt Date: 20140130
  Transmission Date: 20141002
  Serious: Yes (Hospitalization)
  Sender: FDA-Public Use
  Company Number: US-GLAXOSMITHKLINE-A1058077A

PATIENT
  Age: 49 Year
  Sex: Female

DRUGS (3)
  1. ADVAIR HFA [Suspect]
     Indication: ASTHMA
     Dosage: 1PUFF PER DAY
     Route: 055
     Dates: start: 1999
  2. VENTOLIN [Suspect]
     Indication: ASTHMA
     Route: 055
  3. PRILOSEC [Concomitant]

REACTIONS (4)
  - Respiratory distress [Recovering/Resolving]
  - Mechanical ventilation [Recovering/Resolving]
  - Influenza [Recovering/Resolving]
  - Drug administration error [Unknown]
